FAERS Safety Report 6938315-5 (Version None)
Quarter: 2010Q3

REPORT INFORMATION
  Report Type: 
  Country: None (occurrence: None)
  Receive Date: 20100824
  Receipt Date: 20100812
  Transmission Date: 20110219
  Serious: Yes (Death, Hospitalization, Other)
  Sender: FDA-Public Use
  Company Number: DE-PFIZER INC-2009282222

PATIENT
  Age: 55 Year
  Sex: Male
  Weight: 92.7 kg

DRUGS (3)
  1. PEGVISOMANT [Suspect]
     Indication: ACROMEGALY
     Dosage: 10 MG, 1X/DAY
     Dates: start: 20080829
  2. VITAMIN D [Concomitant]
     Dosage: 800 IU, 1X/DAY
  3. CALCIUM [Concomitant]
     Dosage: 1000 MG, 1X/DAY

REACTIONS (2)
  - DEATH [None]
  - NEOPLASM MALIGNANT [None]
